FAERS Safety Report 9166141 (Version 1)
Quarter: 2013Q1

REPORT INFORMATION
  Report Type: Spontaneous
  Country: NL (occurrence: None)
  Receive Date: 20130301
  Receipt Date: 20130301
  Transmission Date: 20140127
  Serious: Yes (Life-Threatening, Hospitalization, Other)
  Sender: FDA-Public Use
  Company Number: 2013P1002552

PATIENT
  Age: 53 Year
  Sex: Female

DRUGS (4)
  1. CITALOPRAM [Suspect]
     Indication: OVERDOSE
  2. VENLAFAXINE [Suspect]
     Indication: DEPRESSION
  3. AMITRIPTYLINE [Suspect]
     Indication: OVERDOSE
  4. LORAZEPAM [Concomitant]

REACTIONS (7)
  - Depressed level of consciousness [None]
  - Laceration [None]
  - Respiratory rate decreased [None]
  - Oxygen saturation decreased [None]
  - Ventricular arrhythmia [None]
  - Blood pressure decreased [None]
  - Blood glucose increased [None]
